FAERS Safety Report 9518787 (Version 2)
Quarter: 2013Q3

REPORT INFORMATION
  Report Type: Spontaneous
  Country: FR (occurrence: FR)
  Receive Date: 20130912
  Receipt Date: 20130912
  Transmission Date: 20140515
  Serious: Yes (Hospitalization)
  Sender: FDA-Public Use
  Company Number: FR-PFIZER INC-FR-WYE-G04415509

PATIENT
  Age: 65 Year
  Sex: Male
  Weight: 75 kg

DRUGS (15)
  1. TYGACIL [Suspect]
     Indication: SEPTIC SHOCK
     Dosage: 50 MG, 2X/DAY
     Route: 042
     Dates: start: 20090827, end: 20090829
  2. LASILIX [Suspect]
     Dosage: 40 MG, 3X/DAY
     Dates: start: 20090825, end: 20090830
  3. AUGMENTIN [Concomitant]
     Indication: SEPTIC SHOCK
     Dosage: UNK
     Route: 042
     Dates: start: 20090827, end: 20090906
  4. CALCI ^HEXAL^ [Concomitant]
     Dosage: UNK
     Route: 058
     Dates: start: 20090821
  5. INEXIUM [Concomitant]
     Dosage: 20 MG, 1X/DAY
     Route: 042
     Dates: start: 20090823
  6. LOXEN [Concomitant]
     Dosage: UNK
     Route: 042
     Dates: start: 20090827
  7. BACLOFEN [Concomitant]
     Dosage: 2 DF, 3X/DAY
  8. NEURONTIN [Concomitant]
     Dosage: 100 MG, 2X/DAY
     Route: 048
  9. ZOCOR [Concomitant]
     Dosage: 20 MG, AT BEDTIME
     Route: 048
  10. OROCAL [Concomitant]
     Dosage: DAILY
  11. ROCEPHINE [Concomitant]
     Indication: SEPTIC SHOCK
     Dosage: UNK
     Dates: start: 200908
  12. OFLOCET [Concomitant]
     Indication: SEPTIC SHOCK
     Dosage: UNK
     Dates: start: 200908
  13. TAZOCILLINE [Concomitant]
     Indication: SEPTIC SHOCK
     Dosage: UNK
     Dates: start: 20090821
  14. CIFLOX [Concomitant]
     Indication: SEPTIC SHOCK
     Dosage: UNK
     Dates: start: 20090821
  15. VANCOCIN [Concomitant]
     Indication: SEPTIC SHOCK
     Dosage: UNK
     Dates: start: 20090821

REACTIONS (3)
  - Pancreatitis acute [Recovered/Resolved]
  - Condition aggravated [Recovered/Resolved]
  - Blood bilirubin increased [Recovered/Resolved]
